APPROVED DRUG PRODUCT: RIBAVIRIN
Active Ingredient: RIBAVIRIN
Strength: 200MG
Dosage Form/Route: CAPSULE;ORAL
Application: A076277 | Product #001
Applicant: TEVA PHARMACEUTICALS USA INC
Approved: Oct 4, 2004 | RLD: No | RS: No | Type: DISCN